FAERS Safety Report 8323112-9 (Version None)
Quarter: 2012Q2

REPORT INFORMATION
  Report Type: 
  Country: None (occurrence: None)
  Receive Date: 20120430
  Receipt Date: 20120425
  Transmission Date: 20120825
  Serious: Yes (Life-Threatening)
  Sender: FDA-Public Use
  Company Number: US-CELGENEUS-163-21880-12042882

PATIENT
  Sex: Male

DRUGS (7)
  1. LYRICA [Concomitant]
     Route: 065
  2. OXYCODONE HCL [Concomitant]
     Route: 065
  3. REVLIMID [Suspect]
     Dosage: 25 TO 10 MILLIGRAM
     Route: 048
     Dates: start: 20120413, end: 20120419
  4. VICODIN [Concomitant]
     Route: 065
  5. FLOMAX [Concomitant]
     Route: 065
  6. PRILOSEC [Concomitant]
     Route: 065
  7. ACYCLOVIR [Concomitant]
     Route: 065

REACTIONS (2)
  - WHITE BLOOD CELL COUNT DECREASED [None]
  - PLATELET COUNT DECREASED [None]
